FAERS Safety Report 10623192 (Version 1)
Quarter: 2014Q4

REPORT INFORMATION
  Report Type: Spontaneous
  Country: US (occurrence: None)
  Receive Date: 20141202
  Receipt Date: 20141202
  Transmission Date: 20150529
  Serious: Yes (Other)
  Sender: FDA-Public Use
  Company Number: None

PATIENT
  Age: 79 Year
  Sex: Male
  Weight: 81.65 kg

DRUGS (3)
  1. AMOXICILLIN. [Suspect]
     Active Substance: AMOXICILLIN
     Indication: ENDODONTIC PROCEDURE
     Route: 048
  2. AUGMENTIN [Suspect]
     Active Substance: AMOXICILLIN\CLAVULANATE POTASSIUM
     Indication: SINUSITIS
     Route: 048
     Dates: start: 20141111, end: 20141114
  3. AMOXICILLIN. [Suspect]
     Active Substance: AMOXICILLIN
     Indication: PREOPERATIVE CARE
     Route: 048

REACTIONS (1)
  - Gingival ulceration [None]

NARRATIVE: CASE EVENT DATE: 20141114
